FAERS Safety Report 6129763-4 (Version None)
Quarter: 2009Q1

REPORT INFORMATION
  Report Type: 
  Country: None (occurrence: None)
  Receive Date: 20090324
  Receipt Date: 20090319
  Transmission Date: 20090719
  Serious: Yes (Other)
  Sender: FDA-Public Use
  Company Number: B0566315A

PATIENT
  Sex: Female

DRUGS (3)
  1. SERETIDE [Suspect]
     Indication: ASTHMA
     Route: 055
     Dates: end: 20090101
  2. ZINADOL [Suspect]
     Indication: INFECTION
     Route: 048
     Dates: start: 20090301, end: 20090301
  3. AEROLIN [Suspect]
     Indication: ASTHMA
     Route: 055

REACTIONS (4)
  - ASTHMA [None]
  - DRUG EXPOSURE DURING PREGNANCY [None]
  - INFECTION [None]
  - TACHYCARDIA [None]
